FAERS Safety Report 8157677-7 (Version None)
Quarter: 2012Q1

REPORT INFORMATION
  Report Type: 
  Country: None (occurrence: None)
  Receive Date: 20120222
  Receipt Date: 20120217
  Transmission Date: 20120608
  Serious: Yes (Death)
  Sender: FDA-Public Use
  Company Number: MY-PFIZER INC-2012038966

PATIENT
  Age: 69 Year
  Sex: Female

DRUGS (16)
  1. VANCOMYCIN [Concomitant]
  2. COTRIM [Concomitant]
  3. GENTAMICIN [Concomitant]
  4. CORDARONE [Suspect]
     Indication: ATRIAL FIBRILLATION
     Dosage: 600 MG, 1X/DAY
     Route: 042
     Dates: start: 20100621
  5. OCTREOTIDE [Concomitant]
  6. VITAMIN K TAB [Concomitant]
  7. MAGNESIUM SULFATE [Concomitant]
  8. ARMODAFINIL [Suspect]
     Indication: FUNGAL INFECTION
     Dosage: 200 MG, 1X/DAY
     Route: 042
     Dates: start: 20100621
  9. MEROPENEM [Concomitant]
  10. CALCIUM GLUCONATE [Concomitant]
  11. METRONIDAZOLE [Concomitant]
  12. FUROSEMIDE [Concomitant]
  13. OMEPRAZOLE [Concomitant]
  14. SODIUM CHLORIDE [Concomitant]
  15. POTASSIUM PHOSPHATE [Concomitant]
  16. CEFOPERAZONE [Concomitant]

REACTIONS (1)
  - HEPATIC ENZYME INCREASED [None]
